FAERS Safety Report 11080051 (Version 1)
Quarter: 2015Q2

REPORT INFORMATION
  Report Type: Spontaneous
  Country: US (occurrence: US)
  Receive Date: 20150430
  Receipt Date: 20150430
  Transmission Date: 20150821
  Serious: Yes (Other)
  Sender: FDA-Public Use
  Company Number: US-TEVA-558402USA

PATIENT
  Age: 60 Year
  Sex: Female

DRUGS (1)
  1. NICOTINIC ACID [Suspect]
     Active Substance: NIACIN
     Route: 048
     Dates: start: 20130730, end: 201503

REACTIONS (8)
  - Asthenia [Recovered/Resolved]
  - Fall [Unknown]
  - Oesophageal ulcer [Unknown]
  - Malaise [Recovered/Resolved]
  - Head injury [Unknown]
  - Vomiting [Recovered/Resolved]
  - Drug hypersensitivity [Recovered/Resolved]
  - Product substitution issue [Unknown]

NARRATIVE: CASE EVENT DATE: 2014
